FAERS Safety Report 20001324 (Version 1)
Quarter: 2021Q4

REPORT INFORMATION
  Report Type: Spontaneous
  Country: US (occurrence: US)
  Receive Date: 20211027
  Receipt Date: 20211027
  Transmission Date: 20220303
  Serious: Yes (Hospitalization)
  Sender: FDA-Public Use
  Company Number: None

PATIENT
  Age: 17 Year
  Sex: Male
  Weight: 83.4 kg

DRUGS (4)
  1. DACARBAZINE [Suspect]
     Active Substance: DACARBAZINE
     Dates: end: 20211006
  2. DOXORUBICIN HYDROCHLORIDE [Suspect]
     Active Substance: DOXORUBICIN HYDROCHLORIDE
     Dates: end: 20211006
  3. BRENTUXIMAB VEDOTIN [Suspect]
     Active Substance: BRENTUXIMAB VEDOTIN
     Dates: end: 20211006
  4. VINBLASTINE SULFATE [Suspect]
     Active Substance: VINBLASTINE SULFATE
     Dates: end: 20211006

REACTIONS (10)
  - Headache [None]
  - Pyrexia [None]
  - Chills [None]
  - Tachycardia [None]
  - Septic shock [None]
  - Klebsiella test positive [None]
  - Enterobacter test positive [None]
  - Pseudomonas test positive [None]
  - Diarrhoea [None]
  - Blood culture positive [None]

NARRATIVE: CASE EVENT DATE: 20211016
